FAERS Safety Report 10187048 (Version 2)
Quarter: 2014Q2

REPORT INFORMATION
  Report Type: Spontaneous
  Country: US (occurrence: US)
  Receive Date: 20140522
  Receipt Date: 20140524
  Transmission Date: 20141212
  Serious: No
  Sender: FDA-Public Use
  Company Number: US-009507513-1405USA009502

PATIENT
  Age: 26 Year
  Sex: Female
  Weight: 72.56 kg

DRUGS (1)
  1. NEXPLANON [Suspect]
     Dosage: ETONOGESTREL IMPLANT
     Route: 059
     Dates: start: 201306

REACTIONS (2)
  - Device difficult to use [Recovered/Resolved]
  - Device deployment issue [Unknown]
